FAERS Safety Report 7312380-8 (Version None)
Quarter: 2011Q1

REPORT INFORMATION
  Report Type: 
  Country: None (occurrence: None)
  Receive Date: 20110224
  Receipt Date: 20110215
  Transmission Date: 20110831
  Serious: Yes (Disabling, Other)
  Sender: FDA-Public Use
  Company Number: CA-JNJFOC-20100701893

PATIENT
  Sex: Female
  Weight: 48.4 kg

DRUGS (8)
  1. CODEINE SULFATE [Concomitant]
     Indication: PRODUCT USED FOR UNKNOWN INDICATION
     Dosage: 30 MG 1 OR 2 TABS HOUR OF SLEEP, WHEN EVER NECESSARY
  2. REMICADE [Suspect]
     Indication: ANKYLOSING SPONDYLITIS
     Route: 042
  3. CODEINE CONTIN [Concomitant]
     Indication: PRODUCT USED FOR UNKNOWN INDICATION
  4. IMIPRAMINE [Concomitant]
     Indication: PRODUCT USED FOR UNKNOWN INDICATION
     Dosage: IMIPRAMINE 10MG TWO AT HOUR OF SLEEP
  5. ETIDROCAL COMBO KIT [Concomitant]
     Indication: PRODUCT USED FOR UNKNOWN INDICATION
  6. DICLOFENAC [Concomitant]
     Indication: PRODUCT USED FOR UNKNOWN INDICATION
     Dosage: DICLOFENAC 5%
  7. DIPROSONE [Concomitant]
     Indication: PRODUCT USED FOR UNKNOWN INDICATION
  8. REMICADE [Suspect]
     Dosage: 100MG/VIAL.  240MG EVERY 8 WEEKS
     Route: 042

REACTIONS (1)
  - TENDONITIS [None]
